FAERS Safety Report 11392472 (Version 2)
Quarter: 2015Q4

REPORT INFORMATION
  Report Type: Report from Study
  Country: JP (occurrence: JP)
  Receive Date: 20150818
  Receipt Date: 20151007
  Transmission Date: 20160304
  Serious: No
  Sender: FDA-Public Use
  Company Number: PHJP2015JP014013

PATIENT
  Age: 60 Year
  Sex: Male

DRUGS (13)
  1. LULICON [Concomitant]
     Dosage: QD
     Route: 062
     Dates: start: 20150424
  2. OMNIPAQUE [Concomitant]
     Active Substance: IOHEXOL
     Indication: SCAN WITH CONTRAST
     Dosage: 100 ML, ONCE/SINGLE
     Route: 042
     Dates: start: 20150528, end: 20150528
  3. ASTOMIN [Concomitant]
     Active Substance: DIMEMORFAN
     Indication: NASOPHARYNGITIS
     Dosage: 10 MG, TID
     Route: 048
     Dates: start: 20120106, end: 20120126
  4. BAYASPIRIN [Concomitant]
     Active Substance: ASPIRIN
     Indication: THROMBOSIS PROPHYLAXIS
     Dosage: 100 MG, QD
     Route: 048
     Dates: start: 20130601
  5. GATIFLO [Concomitant]
     Active Substance: GATIFLOXACIN
     Indication: CONJUNCTIVITIS
     Dosage: 1 DF, TID
     Route: 047
     Dates: start: 20150821
  6. OMNISCAN [Concomitant]
     Active Substance: GADODIAMIDE
     Indication: SCAN WITH CONTRAST
     Dosage: 15 ML, ONCE/SINGLE
     Route: 042
     Dates: start: 20150522, end: 20150522
  7. AMLODIPINE [Concomitant]
     Active Substance: AMLODIPINE BESYLATE
     Indication: HYPERTENSION
     Dosage: 5 MG, QD
     Route: 048
     Dates: start: 2009, end: 20140117
  8. WHITE PETROLATUM [Concomitant]
     Active Substance: PETROLATUM
     Indication: PSORIASIS
     Dosage: BID
     Route: 061
     Dates: start: 20111125
  9. ASTOMIN [Concomitant]
     Active Substance: DIMEMORFAN
     Indication: PHARYNGITIS
     Dosage: 10 MG, TID
     Route: 048
     Dates: start: 20120518, end: 20120528
  10. AIN457 [Suspect]
     Active Substance: SECUKINUMAB
     Indication: PSORIASIS
     Dosage: DOSE BLINDED
     Route: 058
     Dates: start: 20120106
  11. LULICON [Concomitant]
     Indication: TINEA PEDIS
     Dosage: QD
     Route: 062
     Dates: start: 20120302, end: 20120308
  12. RULID [Concomitant]
     Active Substance: ROXITHROMYCIN
     Indication: NASOPHARYNGITIS
     Dosage: 150 MG, BID
     Route: 048
     Dates: start: 20120106, end: 20120121
  13. TEARBALANCE [Concomitant]
     Active Substance: HYALURONATE SODIUM
     Indication: CONJUNCTIVITIS
     Dosage: 1 DF, TID
     Route: 047
     Dates: start: 20150821, end: 20150915

REACTIONS (4)
  - Hypertension [Recovered/Resolved]
  - Blood thyroid stimulating hormone increased [Unknown]
  - Tenosynovitis [Unknown]
  - Vertebral artery stenosis [Unknown]

NARRATIVE: CASE EVENT DATE: 20130530
